FAERS Safety Report 7718775-2 (Version None)
Quarter: 2011Q3

REPORT INFORMATION
  Report Type: 
  Country: None (occurrence: None)
  Receive Date: 20110830
  Receipt Date: 20110825
  Transmission Date: 20111222
  Serious: Yes (Hospitalization, Other)
  Sender: FDA-Public Use
  Company Number: US-PFIZER INC-2011198361

PATIENT
  Sex: Male
  Weight: 48 kg

DRUGS (1)
  1. DILANTIN [Suspect]
     Indication: CONVULSION
     Dosage: 300 MG, 1X/DAY
     Route: 048
     Dates: end: 20110816

REACTIONS (6)
  - BLOOD UREA DECREASED [None]
  - BLOOD CALCIUM DECREASED [None]
  - CARBON DIOXIDE ABNORMAL [None]
  - BLOOD CHLORIDE ABNORMAL [None]
  - FAECALOMA [None]
  - TOXICITY TO VARIOUS AGENTS [None]
